FAERS Safety Report 7018892-9 (Version None)
Quarter: 2010Q3

REPORT INFORMATION
  Report Type: 
  Country: None (occurrence: None)
  Receive Date: 20100928
  Receipt Date: 20100916
  Transmission Date: 20110219
  Serious: Yes (Hospitalization)
  Sender: FDA-Public Use
  Company Number: US-ELI_LILLY_AND_COMPANY-US201009004753

PATIENT
  Sex: Female

DRUGS (9)
  1. FORTEO [Suspect]
     Indication: OSTEOPOROSIS
     Dosage: 20 UG, DAILY (1/D)
     Route: 065
     Dates: start: 20091001
  2. CARVEDILOL [Concomitant]
     Dosage: 6.25 MG, 2/D
     Route: 065
  3. LISINOPRIL HYDROCHLORTHIAZID [Concomitant]
     Dosage: 10/12, DAILY (1/D)
     Route: 065
  4. PLAVIX [Concomitant]
     Dosage: 75 MG, DAILY (1/D)
     Route: 065
  5. ASPIRIN [Concomitant]
     Dosage: 81 MG, UNKNOWN
     Route: 065
  6. FISH OIL [Concomitant]
     Dosage: 1000 MG, UNKNOWN
     Route: 065
  7. COQ10 [Concomitant]
     Dosage: 200 MG, DAILY (1/D)
     Route: 065
  8. CRESTOR [Concomitant]
     Dosage: 20 MG, DAILY (1/D)
     Route: 065
  9. MULTI-VITAMIN [Concomitant]
     Dosage: UNK, DAILY (1/D)
     Route: 065

REACTIONS (7)
  - BACK PAIN [None]
  - CARDIAC ENZYMES INCREASED [None]
  - CHEST PAIN [None]
  - EMOTIONAL DISTRESS [None]
  - MUSCLE TIGHTNESS [None]
  - MYOCARDIAL INFARCTION [None]
  - PAIN IN EXTREMITY [None]
